FAERS Safety Report 4879421-9 (Version None)
Quarter: 2006Q1

REPORT INFORMATION
  Report Type: 
  Country: None (occurrence: None)
  Receive Date: 20060112
  Receipt Date: 20060105
  Transmission Date: 20060701
  Serious: Yes (Death, Hospitalization)
  Sender: FDA-Public Use
  Company Number: US-MERCK-0601USA00549

PATIENT
  Age: 56 Year
  Sex: Male

DRUGS (3)
  1. VIOXX [Suspect]
     Indication: CARPAL TUNNEL SYNDROME
     Route: 048
     Dates: start: 20011210, end: 20020101
  2. VIOXX [Suspect]
     Indication: OSTEOARTHRITIS
     Route: 048
     Dates: start: 20011210, end: 20020101
  3. [THERAPY UNSPECIFIED] [Concomitant]
     Route: 065

REACTIONS (4)
  - ARTERIOSCLEROSIS [None]
  - ARTHRALGIA [None]
  - GLAUCOMA [None]
  - NASAL DISORDER [None]
